FAERS Safety Report 20248049 (Version 1)
Quarter: 2021Q4

REPORT INFORMATION
  Report Type: Spontaneous
  Country: US (occurrence: US)
  Receive Date: 20211229
  Receipt Date: 20211229
  Transmission Date: 20220303
  Serious: Yes (Death)
  Sender: FDA-Public Use
  Company Number: US-TEVA-2021-US-1993405

PATIENT
  Age: 46 Year
  Sex: Male

DRUGS (11)
  1. CLOZAPINE [Suspect]
     Active Substance: CLOZAPINE
     Dosage: 100 MILLIGRAM DAILY; AT BEDTIME
     Route: 065
     Dates: start: 201709
  2. LITHIUM [Concomitant]
     Active Substance: LITHIUM
     Route: 065
  3. ATIVAN [Concomitant]
     Active Substance: LORAZEPAM
     Route: 065
  4. PROZAC [Concomitant]
     Active Substance: FLUOXETINE HYDROCHLORIDE
     Route: 065
  5. REQUIP [Concomitant]
     Active Substance: ROPINIROLE HYDROCHLORIDE
     Route: 065
  6. AMLODIPINE [Concomitant]
     Active Substance: AMLODIPINE BESYLATE
     Route: 065
  7. ATENOLOL [Concomitant]
     Active Substance: ATENOLOL
     Route: 065
  8. ATORVASTATIN [Concomitant]
     Active Substance: ATORVASTATIN
     Route: 065
  9. ISOSORBIDE [Concomitant]
     Active Substance: ISOSORBIDE
     Route: 065
  10. OMEPRAZOLE [Concomitant]
     Active Substance: OMEPRAZOLE
  11. ARTANE [Concomitant]
     Active Substance: TRIHEXYPHENIDYL HYDROCHLORIDE
     Route: 065

REACTIONS (1)
  - Death [Fatal]
